FAERS Safety Report 5216987-3 (Version None)
Quarter: 2007Q1

REPORT INFORMATION
  Report Type: 
  Country: None (occurrence: None)
  Receive Date: 20070124
  Receipt Date: 20070119
  Transmission Date: 20070707
  Serious: Yes (Other)
  Sender: FDA-Public Use
  Company Number: US-BAYER-200615082BCC

PATIENT
  Age: 67 Year
  Sex: Female
  Weight: 64 kg

DRUGS (3)
  1. ALEVE COLD AND SINUS [Suspect]
     Indication: NASOPHARYNGITIS
     Dosage: AS USED: 440/240 MG  UNIT DOSE: 220 MG
     Route: 048
     Dates: start: 20061226
  2. ZOCOR [Concomitant]
  3. ZETIA [Concomitant]

REACTIONS (5)
  - BURNING SENSATION [None]
  - CHEST DISCOMFORT [None]
  - HEART RATE INCREASED [None]
  - PALPITATIONS [None]
  - TREMOR [None]
